FAERS Safety Report 6039913-6 (Version None)
Quarter: 2009Q1

REPORT INFORMATION
  Report Type: 
  Country: None (occurrence: None)
  Receive Date: 20090116
  Receipt Date: 20090107
  Transmission Date: 20090719
  Serious: Yes (Other)
  Sender: FDA-Public Use
  Company Number: GB-ROCHE-607118

PATIENT
  Sex: Female

DRUGS (6)
  1. ORLISTAT [Suspect]
     Indication: OBESITY
     Dosage: STOP DATE: OCTOBER/NOVEMBER 2008.
     Route: 048
     Dates: start: 20071026, end: 20081001
  2. LEVOTHYROXINE SODIUM [Concomitant]
     Indication: HYPOTHYROIDISM
     Dosage: START DATE: LONG TIME AGO
     Route: 048
  3. LEVOTHYROXINE SODIUM [Concomitant]
     Dosage: DOSE INCREASED
     Route: 048
  4. CETRIZINE [Concomitant]
     Dosage: START DATE: COUPLE YEARS AGO
     Route: 048
  5. OMEPRAZOLE [Concomitant]
     Route: 048
     Dates: start: 20060101
  6. DICYCLOVERINE [Concomitant]
     Indication: IRRITABLE BOWEL SYNDROME
     Dosage: START DATE: LONG TIME AGO
     Route: 048

REACTIONS (2)
  - HYPERTHYROIDISM [None]
  - LIVER FUNCTION TEST ABNORMAL [None]
